FAERS Safety Report 20517498 (Version 2)
Quarter: 2022Q1

REPORT INFORMATION
  Report Type: Report from Study
  Country: US (occurrence: None)
  Receive Date: 20220225
  Receipt Date: 20220325
  Transmission Date: 20220423
  Serious: Yes (Life-Threatening, Hospitalization, Other)
  Sender: FDA-Public Use
  Company Number: US-ROCHE-3034027

PATIENT
  Age: 32 Year
  Sex: Female
  Weight: 76.2 kg

DRUGS (4)
  1. ATEZOLIZUMAB [Suspect]
     Active Substance: ATEZOLIZUMAB
     Indication: Breast cancer metastatic
     Dosage: LAST ADMINISTERED DATE: 10/JAN/2022
     Route: 042
     Dates: start: 20220110, end: 20220110
  2. PERTUZUMAB [Suspect]
     Active Substance: PERTUZUMAB
     Indication: Breast cancer metastatic
     Dosage: LAST ADMINISTERED DATE: 10/JAN/2022
     Route: 065
     Dates: start: 20211220, end: 20220110
  3. DOCETAXEL [Suspect]
     Active Substance: DOCETAXEL
     Indication: Breast cancer metastatic
     Dosage: LAST ADMINISTERED DATE: 10/JAN/2022
     Route: 065
     Dates: start: 20211220, end: 20220110
  4. TRASTUZUMAB [Suspect]
     Active Substance: TRASTUZUMAB
     Indication: Breast cancer metastatic
     Dosage: LAST ADMINISTERED DATE: 10/JAN/2022
     Route: 042
     Dates: start: 20211220, end: 20220110

REACTIONS (7)
  - Pneumonia [Recovered/Resolved with Sequelae]
  - Hypotension [Recovered/Resolved with Sequelae]
  - Diarrhoea [Recovered/Resolved with Sequelae]
  - Stomatitis [Recovered/Resolved with Sequelae]
  - Pneumonitis [Recovered/Resolved with Sequelae]
  - Seizure [Recovered/Resolved with Sequelae]
  - Hypocalcaemia [Unknown]

NARRATIVE: CASE EVENT DATE: 20220121
